FAERS Safety Report 5466582-6 (Version None)
Quarter: 2007Q3

REPORT INFORMATION
  Report Type: 
  Country: None (occurrence: None)
  Receive Date: 20070925
  Receipt Date: 20070917
  Transmission Date: 20080115
  Serious: Yes (Death, Hospitalization, Other)
  Sender: FDA-Public Use
  Company Number: PHBS2007IT15487

PATIENT
  Age: 61 Year
  Sex: Male

DRUGS (2)
  1. PREDNISONE [Suspect]
     Indication: RENAL TRANSPLANT
     Dosage: 8 MG/DAY
     Route: 065
  2. CYCLOSPORINE [Suspect]
     Indication: RENAL TRANSPLANT
     Dosage: 3 MG/KG/DAY
     Route: 065

REACTIONS (21)
  - ALTERNARIA INFECTION [None]
  - ARTHRALGIA [None]
  - CATARACT [None]
  - COLON ADENOMA [None]
  - ENTEROCOLITIS HAEMORRHAGIC [None]
  - GENERAL PHYSICAL HEALTH DETERIORATION [None]
  - GLOMERULONEPHRITIS PROLIFERATIVE [None]
  - HERPES ZOSTER [None]
  - HYPERTENSION [None]
  - HYPOTENSION [None]
  - KIDNEY TRANSPLANT REJECTION [None]
  - PHAEHYPHOMYCOSIS [None]
  - PNEUMONIA [None]
  - PYODERMA [None]
  - PYREXIA [None]
  - RETINAL DISORDER [None]
  - SKIN INDURATION [None]
  - SKIN NECROSIS [None]
  - SKIN NODULE [None]
  - SKIN ULCER [None]
  - STAPHYLOCOCCAL SKIN INFECTION [None]
